FAERS Safety Report 5299406-0 (Version None)
Quarter: 2007Q2

REPORT INFORMATION
  Report Type: 
  Country: None (occurrence: None)
  Receive Date: 20070417
  Receipt Date: 20070412
  Transmission Date: 20071010
  Serious: Yes (Death, Hospitalization)
  Sender: FDA-Public Use
  Company Number: US-BRISTOL-MYERS SQUIBB COMPANY-13747274

PATIENT
  Age: 65 Year
  Sex: Female

DRUGS (4)
  1. ENTECAVIR [Suspect]
  2. TEMOZOLOMIDE [Suspect]
     Indication: GLIOBLASTOMA
  3. VALPROIC ACID [Suspect]
     Indication: CONVULSION PROPHYLAXIS
  4. RADIATION THERAPY [Concomitant]
     Indication: GLIOBLASTOMA

REACTIONS (1)
  - HEPATOTOXICITY [None]
